FAERS Safety Report 9084694 (Version 1)
Quarter: 2013Q1

REPORT INFORMATION
  Report Type: Report from Study
  Country: US (occurrence: US)
  Receive Date: 20130131
  Receipt Date: 20130131
  Transmission Date: 20140127
  Serious: No
  Sender: FDA-Public Use
  Company Number: US-ABBOTT-12P-163-1014796-00

PATIENT
  Sex: Female
  Weight: 104.42 kg

DRUGS (13)
  1. HUMIRA [Suspect]
     Indication: PSORIASIS
     Route: 058
     Dates: start: 201011, end: 201112
  2. PRAVASTATIN [Concomitant]
     Indication: BLOOD CHOLESTEROL INCREASED
  3. OXYBUTYNIN (NON-ABBOTT) [Concomitant]
     Indication: URINARY INCONTINENCE
  4. ALLOPURINOL (NON-ABBOTT) [Concomitant]
     Indication: GOUT
  5. TRAZODONE (NON-ABBOTT) [Concomitant]
     Indication: BIPOLAR DISORDER
  6. KLONOPIN [Concomitant]
     Indication: BIPOLAR DISORDER
  7. PROZAC [Concomitant]
     Indication: DEPRESSION
  8. MORPHINE [Concomitant]
     Indication: PAIN
  9. FUROSEMIDE (NON-ABBOTT) [Concomitant]
     Indication: SWELLING
  10. BABY ASPIRIN [Concomitant]
     Indication: PRODUCT USED FOR UNKNOWN INDICATION
  11. VITAMIN D3 [Concomitant]
     Indication: PRODUCT USED FOR UNKNOWN INDICATION
  12. LANTUS [Concomitant]
     Indication: DIABETES MELLITUS
  13. HUMALOG [Concomitant]
     Indication: DIABETES MELLITUS

REACTIONS (2)
  - Pollakiuria [Recovered/Resolved]
  - Dysuria [Recovered/Resolved]
